FAERS Safety Report 5573774-4 (Version None)
Quarter: 2007Q4

REPORT INFORMATION
  Report Type: 
  Country: None (occurrence: None)
  Receive Date: 20071226
  Receipt Date: 20071218
  Transmission Date: 20080405
  Serious: Yes (Other)
  Sender: FDA-Public Use
  Company Number: GB-ASTRAZENECA-2007GB02598

PATIENT
  Age: 85 Year
  Sex: Male
  Weight: 98 kg

DRUGS (1)
  1. ZOLADEX [Suspect]
     Indication: PROSTATE CANCER
     Route: 058
     Dates: start: 20060822

REACTIONS (2)
  - IMPLANT SITE REACTION [None]
  - SKIN LACERATION [None]
